FAERS Safety Report 20969082 (Version 3)
Quarter: 2022Q3

REPORT INFORMATION
  Report Type: Spontaneous
  Country: SK (occurrence: SK)
  Receive Date: 20220616
  Receipt Date: 20220707
  Transmission Date: 20221027
  Serious: Yes (Hospitalization, Other)
  Sender: FDA-Public Use
  Company Number: SK-NOVARTISPH-NVSC2022SK138093

PATIENT
  Age: 59 Year
  Sex: Female

DRUGS (4)
  1. TAFINLAR [Suspect]
     Active Substance: DABRAFENIB MESYLATE
     Indication: Metastatic malignant melanoma
     Dosage: UNK
     Route: 065
     Dates: start: 20140201, end: 201505
  2. TAFINLAR [Suspect]
     Active Substance: DABRAFENIB MESYLATE
     Indication: BRAF gene mutation
     Dosage: UNK (1-0-2 CAPSULE, 1-0-1 CAPSULE SINCE MARCH 2016, AFTER DOSE ADJUSTMENT 1-0-2 CAPSULE)
     Route: 065
     Dates: start: 201605
  3. MEKINIST [Suspect]
     Active Substance: TRAMETINIB DIMETHYL SULFOXIDE
     Indication: Metastatic malignant melanoma
     Dosage: UNK
     Route: 065
     Dates: start: 20140201, end: 201505
  4. MEKINIST [Suspect]
     Active Substance: TRAMETINIB DIMETHYL SULFOXIDE
     Indication: BRAF gene mutation
     Dosage: UNK
     Route: 065
     Dates: start: 201603

REACTIONS (8)
  - Metastatic malignant melanoma [Recovered/Resolved]
  - Malignant neoplasm progression [Recovered/Resolved]
  - Metastases to breast [Unknown]
  - Upper limb fracture [Recovered/Resolved]
  - Neoplasm [Unknown]
  - Lymphadenopathy [Unknown]
  - Pyrexia [Recovered/Resolved]
  - Oedema peripheral [Recovered/Resolved]

NARRATIVE: CASE EVENT DATE: 20141201
